FAERS Safety Report 4983373-0 (Version None)
Quarter: 2006Q2

REPORT INFORMATION
  Report Type: 
  Country: None (occurrence: None)
  Receive Date: 20060426
  Receipt Date: 20060419
  Transmission Date: 20061013
  Serious: Yes (Hospitalization)
  Sender: FDA-Public Use
  Company Number: IT-JNJFOC-20060400790

PATIENT

DRUGS (2)
  1. REOPRO [Suspect]
     Route: 042
  2. RETEPLASE [Suspect]
     Route: 042

REACTIONS (2)
  - GASTROINTESTINAL HAEMORRHAGE [None]
  - MALLORY-WEISS SYNDROME [None]
